FAERS Safety Report 16143120 (Version 9)
Quarter: 2024Q4

REPORT INFORMATION
  Report Type: Spontaneous
  Country: IT (occurrence: IT)
  Receive Date: 20190401
  Receipt Date: 20241028
  Transmission Date: 20250115
  Serious: Yes (Death, Other)
  Sender: PFIZER
  Company Number: IT-NOVPHSZ-GXKR2004IT04609

PATIENT
  Age: 45 Year
  Sex: Female

DRUGS (28)
  1. PANTOPRAZOLE [Suspect]
     Active Substance: PANTOPRAZOLE
     Dosage: UNK
     Dates: start: 20021009
  2. CALCIUM CARBONATE\CHOLECALCIFEROL [Suspect]
     Active Substance: CALCIUM CARBONATE\CHOLECALCIFEROL
     Dosage: UNK
  3. CALCIUM CARBONATE\CHOLECALCIFEROL [Suspect]
     Active Substance: CALCIUM CARBONATE\CHOLECALCIFEROL
     Dosage: 1 G, 1X/DAY
     Route: 065
     Dates: start: 20020927
  4. AMOXICILLIN\CLAVULANIC ACID [Suspect]
     Active Substance: AMOXICILLIN\CLAVULANIC ACID
     Indication: Pneumonia
     Dosage: 3600 MG, 1X/DAY
     Route: 042
     Dates: start: 20021004, end: 20021019
  5. NYSTATIN [Suspect]
     Active Substance: NYSTATIN
     Indication: Oral candidiasis
     Dosage: UNK
     Route: 065
  6. NYSTATIN [Suspect]
     Active Substance: NYSTATIN
     Indication: Cystitis
     Dosage: 12 ML, DAILY
     Dates: start: 20020927, end: 20021009
  7. DIAZEPAM [Suspect]
     Active Substance: DIAZEPAM
     Indication: Agitation
     Dosage: UNK, DAILY
     Route: 065
     Dates: start: 20021009
  8. DIAZEPAM [Suspect]
     Active Substance: DIAZEPAM
     Indication: Hallucination
  9. LEVOFLOXACIN [Suspect]
     Active Substance: LEVOFLOXACIN
     Indication: Pneumonia
     Dosage: 500 MG, 1X/DAY
     Route: 048
     Dates: start: 20021004, end: 20021019
  10. OMEPRAZOLE [Suspect]
     Active Substance: OMEPRAZOLE
     Dosage: 20 MG, 1X/DAY
     Route: 065
     Dates: start: 20020927, end: 20021103
  11. RABEPRAZOLE SODIUM [Suspect]
     Active Substance: RABEPRAZOLE SODIUM
     Dosage: UNK
  12. FUROSEMIDE [Suspect]
     Active Substance: FUROSEMIDE
     Indication: Oliguria
     Dosage: UNK
     Route: 048
     Dates: start: 20021004, end: 20021015
  13. FUROSEMIDE [Suspect]
     Active Substance: FUROSEMIDE
     Indication: Renal impairment
     Dosage: UNK
     Route: 042
     Dates: start: 20021027
  14. CALCITRIOL [Suspect]
     Active Substance: CALCITRIOL
     Dosage: 0.5 UG, 1X/DAY
     Dates: start: 20020927
  15. METOCLOPRAMIDE [Suspect]
     Active Substance: METOCLOPRAMIDE
     Dosage: UNK
  16. HALOPERIDOL [Suspect]
     Active Substance: HALOPERIDOL
     Indication: Hallucination
     Dosage: UNK, DAILY
     Dates: start: 20021009
  17. ITRACONAZOLE [Suspect]
     Active Substance: ITRACONAZOLE
     Indication: Oral candidiasis
     Dosage: 100 MG (100 MG/DIE)
     Dates: start: 20021009
  18. FLUDROCORTISONE [Suspect]
     Active Substance: FLUDROCORTISONE
     Dosage: UNK
     Dates: start: 20020927, end: 20021024
  19. CEFACLOR [Suspect]
     Active Substance: CEFACLOR
     Indication: Oral candidiasis
     Dosage: UNK
  20. CEFACLOR [Suspect]
     Active Substance: CEFACLOR
     Indication: Cystitis
  21. BETAMETHASONE [Suspect]
     Active Substance: BETAMETHASONE
     Dosage: UNK
  22. BETAMETHASONE [Suspect]
     Active Substance: BETAMETHASONE
     Dosage: 8 MG, 1X/DAY
     Route: 042
     Dates: start: 20021106
  23. CANRENOATE POTASSIUM [Suspect]
     Active Substance: CANRENOATE POTASSIUM
     Indication: Agitation
     Dosage: UNK
     Route: 048
     Dates: start: 20021004
  24. CANRENOATE POTASSIUM [Suspect]
     Active Substance: CANRENOATE POTASSIUM
     Dosage: UNK
     Route: 048
     Dates: start: 20021004
  25. CANRENOATE POTASSIUM [Suspect]
     Active Substance: CANRENOATE POTASSIUM
     Dosage: UNK
     Route: 048
     Dates: start: 20021004
  26. CALCIUM GLUCONATE [Suspect]
     Active Substance: CALCIUM GLUCONATE
     Indication: Hypocalcaemia
     Dosage: UNK
     Route: 065
     Dates: start: 20021009
  27. CALCIUM GLUCONATE [Suspect]
     Active Substance: CALCIUM GLUCONATE
     Indication: Hypokalaemia
     Dosage: UNK
     Dates: start: 20021106
  28. CORTISONE ACETATE [Suspect]
     Active Substance: CORTISONE ACETATE
     Dosage: 50 MG, 1X/DAY
     Dates: start: 20020927, end: 20021103

REACTIONS (2)
  - Toxic epidermal necrolysis [Fatal]
  - Septic shock [Fatal]

NARRATIVE: CASE EVENT DATE: 20021101
